FAERS Safety Report 8303174-5 (Version None)
Quarter: 2012Q2

REPORT INFORMATION
  Report Type: 
  Country: None (occurrence: None)
  Receive Date: 20120423
  Receipt Date: 20120416
  Transmission Date: 20120825
  Serious: No
  Sender: FDA-Public Use
  Company Number: US-BIOGENIDEC-2010BI042792

PATIENT
  Age: 39 Year
  Sex: Female

DRUGS (7)
  1. TYLENOL (CAPLET) [Concomitant]
     Indication: PREMEDICATION
  2. BENADRYL [Concomitant]
  3. BENADRYL [Concomitant]
     Indication: PREMEDICATION
     Route: 042
  4. TYSABRI [Suspect]
     Indication: MULTIPLE SCLEROSIS
     Route: 042
     Dates: start: 20101117
  5. IBUPROFEN (ADVIL) [Concomitant]
     Indication: PREMEDICATION
  6. AVONEX [Concomitant]
     Indication: MULTIPLE SCLEROSIS
     Route: 030
  7. ACNE MEDICATION (NOS) [Concomitant]
     Indication: ACNE

REACTIONS (26)
  - ABDOMINAL PAIN [None]
  - BACK PAIN [None]
  - FEELING COLD [None]
  - FUNGAL INFECTION [None]
  - RASH PAPULAR [None]
  - VAGINAL DISCHARGE [None]
  - DIZZINESS [None]
  - FATIGUE [None]
  - BURNING SENSATION [None]
  - VULVOVAGINAL DRYNESS [None]
  - VAGINAL HAEMORRHAGE [None]
  - DYSSTASIA [None]
  - PARAESTHESIA [None]
  - THROAT TIGHTNESS [None]
  - HEADACHE [None]
  - ASTHENIA [None]
  - SPEECH DISORDER [None]
  - SOMNOLENCE [None]
  - GENERAL SYMPTOM [None]
  - ACNE [None]
  - APHASIA [None]
  - ARTHRALGIA [None]
  - HOT FLUSH [None]
  - DRUG SPECIFIC ANTIBODY PRESENT [None]
  - MUSCLE SPASMS [None]
  - DIARRHOEA [None]
